FAERS Safety Report 7927555-4 (Version None)
Quarter: 2011Q4

REPORT INFORMATION
  Report Type: 
  Country: None (occurrence: None)
  Receive Date: 20111117
  Receipt Date: 20111117
  Transmission Date: 20120403
  Serious: No
  Sender: FDA-Public Use
  Company Number: None

PATIENT

DRUGS (1)
  1. CHILDREN'S CLARITIN [Suspect]

REACTIONS (2)
  - PRODUCT QUALITY ISSUE [None]
  - PRODUCT CONTAINER ISSUE [None]
